FAERS Safety Report 9100989 (Version 1)
Quarter: 2013Q1

REPORT INFORMATION
  Report Type: Spontaneous
  Country: SE (occurrence: SE)
  Receive Date: 20130214
  Receipt Date: 20130214
  Transmission Date: 20140127
  Serious: Yes (Hospitalization)
  Sender: FDA-Public Use
  Company Number: SE-PFIZER INC-2013057279

PATIENT
  Age: 34 Year
  Sex: Female

DRUGS (4)
  1. TAZOCIN [Suspect]
     Indication: SEPSIS
     Dosage: UNK
     Dates: start: 20120511, end: 20120522
  2. OXYNORM [Concomitant]
     Dosage: UNK
  3. OXYCONTIN [Concomitant]
     Dosage: UNK
  4. PANODIL [Concomitant]
     Dosage: UNK

REACTIONS (2)
  - Lip swelling [Unknown]
  - Tongue oedema [Unknown]
